FAERS Safety Report 20426452 (Version 1)
Quarter: 2022Q1

REPORT INFORMATION
  Report Type: Spontaneous
  Country: GB (occurrence: GB)
  Receive Date: 20220204
  Receipt Date: 20220204
  Transmission Date: 20220423
  Serious: No
  Sender: FDA-Public Use
  Company Number: GB-EXELIXIS-CABO-21042890

PATIENT
  Age: 35 Year
  Sex: Female
  Weight: 87.7 kg

DRUGS (2)
  1. CABOMETYX [Suspect]
     Active Substance: CABOZANTINIB S-MALATE
     Indication: Leiomyosarcoma metastatic
     Dosage: 60 MG, QD
     Route: 048
     Dates: start: 20210831
  2. EDOXABAN [Concomitant]
     Active Substance: EDOXABAN
     Indication: Thrombosis prophylaxis
     Dosage: 30 MG
     Route: 048
     Dates: start: 201910

REACTIONS (9)
  - Blood thyroid stimulating hormone increased [Not Recovered/Not Resolved]
  - Gastrooesophageal reflux disease [Not Recovered/Not Resolved]
  - Fatigue [Not Recovered/Not Resolved]
  - Diarrhoea [Not Recovered/Not Resolved]
  - Stomatitis [Not Recovered/Not Resolved]
  - Dry skin [Not Recovered/Not Resolved]
  - Proteinuria [Not Recovered/Not Resolved]
  - Hypertension [Not Recovered/Not Resolved]
  - Off label use [Unknown]

NARRATIVE: CASE EVENT DATE: 20210920
